FAERS Safety Report 26021777 (Version 1)
Quarter: 2025Q4

REPORT INFORMATION
  Report Type: Spontaneous
  Country: TR (occurrence: TR)
  Receive Date: 20251110
  Receipt Date: 20251110
  Transmission Date: 20260118
  Serious: Yes (Other)
  Sender: BAYER HEALTHCARE PHARMACEUTICALS INC.
  Company Number: TR-BAYER-2025A145638

PATIENT
  Age: 50 Day
  Sex: Female

DRUGS (2)
  1. VITRAKVI [Suspect]
     Active Substance: LAROTRECTINIB
     Indication: Neoplasm
     Dosage: 1 MG, BID
     Route: 048
     Dates: start: 20250929, end: 20251013
  2. VITRAKVI [Suspect]
     Active Substance: LAROTRECTINIB
     Indication: Neoplasm
     Dosage: 0.5 MG, BID
     Route: 048
     Dates: start: 20251014

REACTIONS (3)
  - Heart rate increased [Not Recovered/Not Resolved]
  - Respiratory distress [Not Recovered/Not Resolved]
  - Abdominal distension [Not Recovered/Not Resolved]

NARRATIVE: CASE EVENT DATE: 20251001
